FAERS Safety Report 14063586 (Version 1)
Quarter: 2017Q4

REPORT INFORMATION
  Report Type: Spontaneous
  Country: US (occurrence: US)
  Receive Date: 20171009
  Receipt Date: 20171009
  Transmission Date: 20180321
  Serious: Yes (Other)
  Sender: FDA-Public Use
  Company Number: US-BEH-2017084108

PATIENT
  Age: 77 Year
  Sex: Female
  Weight: 81.63 kg

DRUGS (21)
  1. HIZENTRA [Suspect]
     Active Substance: HUMAN IMMUNOGLOBULIN G
     Indication: IMMUNODEFICIENCY COMMON VARIABLE
     Dosage: 3 G, AS DIRECTED
     Route: 058
     Dates: start: 20120427
  2. LORATADINE. [Concomitant]
     Active Substance: LORATADINE
  3. KALTSIUM [Concomitant]
  4. METOPROLOL SUCC CT [Concomitant]
  5. CLONIDINE. [Concomitant]
     Active Substance: CLONIDINE
  6. GABAPENTIN. [Concomitant]
     Active Substance: GABAPENTIN
  7. HYDROCHLOROTHIAZIDE. [Concomitant]
     Active Substance: HYDROCHLOROTHIAZIDE
  8. EPINEPHRINE. [Concomitant]
     Active Substance: EPINEPHRINE
  9. MURO-128 [Concomitant]
  10. GLIMEPIRIDE. [Concomitant]
     Active Substance: GLIMEPIRIDE
  11. DOCUSATE [Concomitant]
     Active Substance: DOCUSATE
  12. SIMVASTATIN. [Concomitant]
     Active Substance: SIMVASTATIN
  13. DIPHENHYDRAMINE. [Concomitant]
     Active Substance: DIPHENHYDRAMINE
  14. LIDOCAINE/PRILOCAINE [Concomitant]
     Active Substance: LIDOCAINE\PRILOCAINE
  15. DOXYCYCLINE HYCLATE. [Concomitant]
     Active Substance: DOXYCYCLINE HYCLATE
  16. SYNTHROID [Concomitant]
     Active Substance: LEVOTHYROXINE SODIUM
  17. PRILOSEC [Concomitant]
     Active Substance: OMEPRAZOLE MAGNESIUM
  18. LUNESTA [Concomitant]
     Active Substance: ESZOPICLONE
  19. HIZENTRA [Suspect]
     Active Substance: HUMAN IMMUNOGLOBULIN G
     Dosage: UNK
     Route: 058
  20. HIZENTRA [Suspect]
     Active Substance: HUMAN IMMUNOGLOBULIN G
     Dosage: UNK
     Route: 058
  21. NEXIUM [Concomitant]
     Active Substance: ESOMEPRAZOLE MAGNESIUM

REACTIONS (1)
  - Diverticulitis [Unknown]

NARRATIVE: CASE EVENT DATE: 201709
